FAERS Safety Report 16735980 (Version 11)
Quarter: 2022Q3

REPORT INFORMATION
  Report Type: Spontaneous
  Country: US (occurrence: US)
  Receive Date: 20190823
  Receipt Date: 20220727
  Transmission Date: 20221027
  Serious: Yes (Other)
  Sender: FDA-Public Use
  Company Number: US-PFIZER INC-2018524783

PATIENT
  Age: 69 Year
  Sex: Female
  Weight: 84 kg

DRUGS (3)
  1. LYRICA [Suspect]
     Active Substance: PREGABALIN
     Indication: Back pain
     Dosage: 150 MG, 1X/DAY
     Route: 048
  2. LYRICA [Suspect]
     Active Substance: PREGABALIN
     Indication: Sciatica
  3. LYRICA [Suspect]
     Active Substance: PREGABALIN
     Indication: Neuralgia

REACTIONS (8)
  - COVID-19 [Unknown]
  - Withdrawal syndrome [Unknown]
  - Influenza [Unknown]
  - Malaise [Unknown]
  - Nausea [Unknown]
  - Therapeutic response unexpected [Unknown]
  - Crying [Unknown]
  - Hot flush [Unknown]

NARRATIVE: CASE EVENT DATE: 20200701
